FAERS Safety Report 4846420-2 (Version None)
Quarter: 2005Q4

REPORT INFORMATION
  Report Type: 
  Country: None (occurrence: None)
  Receive Date: 20051128
  Receipt Date: 20051114
  Transmission Date: 20060501
  Serious: Yes (Death)
  Sender: FDA-Public Use
  Company Number: THYM-10788

PATIENT

DRUGS (2)
  1. THYMOGLOBULIN [Suspect]
     Indication: PANCREAS TRANSPLANT
  2. THYMOGLOBULIN [Suspect]
     Indication: RENAL TRANSPLANT

REACTIONS (3)
  - CARDIAC ARREST [None]
  - INCORRECT DRUG ADMINISTRATION DURATION [None]
  - LABORATORY TEST ABNORMAL [None]
